FAERS Safety Report 8875872 (Version 1)
Quarter: 2012Q4

REPORT INFORMATION
  Report Type: 
  Country: US (occurrence: US)
  Receive Date: 20121023
  Receipt Date: 20121023
  Transmission Date: 20130627
  Serious: Yes (Hospitalization, Other)
  Sender: FDA-Public Use
  Company Number: US-NOVOPROD-362263

PATIENT
  Age: 65 Year
  Sex: Female
  Weight: 136.5 kg

DRUGS (2)
  1. NOVOLOG FLEXPEN [Suspect]
     Indication: TYPE 2 DIABETES MELLITUS
     Dosage: 10 IU, tid with meals
     Route: 058
     Dates: start: 2011
  2. LANTUS [Concomitant]
     Indication: TYPE 2 DIABETES MELLITUS
     Dosage: 55 IU, qd
     Route: 058

REACTIONS (3)
  - Cardiac failure congestive [Unknown]
  - Device malfunction [Recovered/Resolved]
  - Blood glucose increased [Recovered/Resolved]
